FAERS Safety Report 6706428-9 (Version None)
Quarter: 2010Q2

REPORT INFORMATION
  Report Type: 
  Country: None (occurrence: None)
  Receive Date: 20100503
  Receipt Date: 20100423
  Transmission Date: 20101027
  Serious: Yes (Other)
  Sender: FDA-Public Use
  Company Number: PHHY2010BR25721

PATIENT
  Sex: Female
  Weight: 71 kg

DRUGS (1)
  1. PARLODEL [Suspect]
     Indication: ADENOMA BENIGN
     Dosage: 2.5 MG DAILY
     Route: 048
     Dates: start: 19970101

REACTIONS (4)
  - CAESAREAN SECTION [None]
  - DRUG EXPOSURE DURING PREGNANCY [None]
  - GENERALISED OEDEMA [None]
  - GESTATIONAL DIABETES [None]
